FAERS Safety Report 10192808 (Version 1)
Quarter: 2014Q2

REPORT INFORMATION
  Report Type: Spontaneous
  Country: US (occurrence: US)
  Receive Date: 20140523
  Receipt Date: 20140523
  Transmission Date: 20141212
  Serious: No
  Sender: FDA-Public Use
  Company Number: US-ASTRAZENECA-2014SE01957

PATIENT
  Sex: Male

DRUGS (1)
  1. PULMICORT FLEXHALER [Suspect]
     Dosage: 180 MCG TWO PUFFS TWICE DAILY
     Route: 055
     Dates: start: 20131228

REACTIONS (2)
  - Nasopharyngitis [Unknown]
  - Circumstance or information capable of leading to medication error [Unknown]
